FAERS Safety Report 5424552-8 (Version None)
Quarter: 2007Q3

REPORT INFORMATION
  Report Type: 
  Country: None (occurrence: None)
  Receive Date: 20070822
  Receipt Date: 20070815
  Transmission Date: 20080115
  Serious: Yes (Hospitalization)
  Sender: FDA-Public Use
  Company Number: L07-GER-03072-01

PATIENT
  Age: 44 Year
  Sex: Male

DRUGS (2)
  1. ESCITALOPRAM OXALATE [Suspect]
     Indication: BIPOLAR I DISORDER
     Dosage: 30 MG QD
  2. ARIPIPRAZOLE [Suspect]
     Indication: BIPOLAR I DISORDER
     Dosage: 15 MG QD

REACTIONS (2)
  - DRUG INTERACTION [None]
  - SEROTONIN SYNDROME [None]
